FAERS Safety Report 8756450 (Version 2)
Quarter: 2012Q4

REPORT INFORMATION
  Report Type: 
  Country: NL (occurrence: NL)
  Receive Date: 20120828
  Receipt Date: 20121029
  Transmission Date: 20130627
  Serious: Yes (Other)
  Sender: FDA-Public Use
  Company Number: NL-BIOGENIDEC-2012BI033273

PATIENT
  Age: 31 Year
  Sex: Female

DRUGS (1)
  1. AVONEX [Suspect]
     Indication: RELAPSING-REMITTING MULTIPLE SCLEROSIS
     Route: 030
     Dates: start: 20120426

REACTIONS (6)
  - Vision blurred [Unknown]
  - Eye movement disorder [Unknown]
  - Central nervous system lesion [Unknown]
  - Multiple sclerosis relapse [Unknown]
  - Petit mal epilepsy [Recovered/Resolved]
  - Dizziness [Unknown]
